FAERS Safety Report 5743022-0 (Version None)
Quarter: 2008Q2

REPORT INFORMATION
  Report Type: 
  Country: None (occurrence: None)
  Receive Date: 20080519
  Receipt Date: 20080513
  Transmission Date: 20081010
  Serious: Yes (Other)
  Sender: FDA-Public Use
  Company Number: US-BRISTOL-MYERS SQUIBB COMPANY-14193890

PATIENT
  Age: 35 Year
  Sex: Male

DRUGS (3)
  1. CYCLOPHOSPHAMIDE [Suspect]
     Indication: BONE MARROW CONDITIONING REGIMEN
  2. MESNA [Suspect]
     Indication: BONE MARROW CONDITIONING REGIMEN
  3. RADIOTHERAPY [Suspect]
     Indication: BONE MARROW CONDITIONING REGIMEN

REACTIONS (2)
  - LIVER TRANSPLANT [None]
  - VENOOCCLUSIVE LIVER DISEASE [None]
